FAERS Safety Report 4335821-7 (Version None)
Quarter: 2004Q2

REPORT INFORMATION
  Report Type: 
  Country: None (occurrence: None)
  Receive Date: 20040405
  Receipt Date: 20021113
  Transmission Date: 20050107
  Serious: Yes (Other)
  Sender: FDA-Public Use
  Company Number: 2002IC000320

PATIENT
  Age: 76 Year
  Sex: Male

DRUGS (3)
  1. FLUOROURACIL [Suspect]
     Indication: COLON CANCER RECURRENT
     Dosage: 1 GM; INTRAVENOUS
     Route: 042
     Dates: start: 20000704, end: 20000711
  2. ISOVORIN [Suspect]
     Indication: COLON CANCER RECURRENT
     Dosage: 300 MG; DAILY; INTRAVENOUS
     Route: 042
     Dates: start: 20000704, end: 20000711
  3. PREDONINE [Concomitant]

REACTIONS (6)
  - ANAEMIA [None]
  - DIARRHOEA [None]
  - ELECTROLYTE IMBALANCE [None]
  - HEPATIC FUNCTION ABNORMAL [None]
  - STOMATITIS [None]
  - VOMITING [None]
